FAERS Safety Report 6914368-5 (Version None)
Quarter: 2010Q3

REPORT INFORMATION
  Report Type: 
  Country: None (occurrence: None)
  Receive Date: 20100809
  Receipt Date: 20100730
  Transmission Date: 20110219
  Serious: Yes (Hospitalization)
  Sender: FDA-Public Use
  Company Number: JP-ROCHE-716697

PATIENT
  Sex: Female
  Weight: 50 kg

DRUGS (11)
  1. TOCILIZUMAB [Suspect]
     Indication: RHEUMATOID ARTHRITIS
     Route: 065
     Dates: start: 20090127, end: 20100721
  2. TOCILIZUMAB [Suspect]
     Dosage: 7 TH ADMINISTRATION
     Route: 065
     Dates: start: 20090715
  3. TOCILIZUMAB [Suspect]
     Route: 065
     Dates: start: 20100219, end: 20100721
  4. OCRELIZUMAB [Suspect]
     Indication: RHEUMATOID ARTHRITIS
     Dosage: DATE OF LAST DOSE PRIOR TO SAE: 02 SEPTEMBER 2009
     Route: 042
     Dates: start: 20090819
  5. PLACEBO [Suspect]
     Indication: RHEUMATOID ARTHRITIS
     Dosage: INFUSION, DATE OF LAST DOSE PRIOR TO SAE: 25 SEPTEMBER 2008
     Route: 042
     Dates: start: 20080911
  6. METHOTREXATE [Suspect]
     Indication: PRODUCT USED FOR UNKNOWN INDICATION
     Dosage: DOSE: 10 MG/WEEK
     Route: 065
     Dates: start: 20080527
  7. PREDNISOLONE [Suspect]
     Indication: PRODUCT USED FOR UNKNOWN INDICATION
     Dosage: DOSE: 2 MG/DAY
     Route: 065
     Dates: start: 20000201
  8. LOXOPROFEN SODIUM [Suspect]
     Indication: PRODUCT USED FOR UNKNOWN INDICATION
     Dosage: DOSE: 120 MG/DAY
     Route: 065
     Dates: start: 20080812
  9. ISONIAZID [Suspect]
     Indication: PRODUCT USED FOR UNKNOWN INDICATION
     Route: 065
     Dates: start: 20050701
  10. FOLIC ACID [Concomitant]
     Dosage: DOSE: 5 MG/WEEK
     Dates: start: 20000201
  11. AZULENE SULFONATE SODIUM [Concomitant]
     Dosage: DOSE: 1 G/DAY
     Dates: start: 20080812

REACTIONS (1)
  - IRON DEFICIENCY ANAEMIA [None]
